FAERS Safety Report 14215879 (Version 1)
Quarter: 2017Q4

REPORT INFORMATION
  Report Type: Spontaneous
  Country: JP (occurrence: JP)
  Receive Date: 20171122
  Receipt Date: 20171122
  Transmission Date: 20180321
  Serious: Yes (Other)
  Sender: FDA-Public Use
  Company Number: JP-ASTELLAS-2017JP022484

PATIENT
  Age: 61 Year
  Sex: Male

DRUGS (3)
  1. BETANIS [Suspect]
     Active Substance: MIRABEGRON
     Indication: POLLAKIURIA
     Route: 048
     Dates: start: 2017
  2. URIEF [Concomitant]
     Active Substance: SILODOSIN
     Indication: PRODUCT USED FOR UNKNOWN INDICATION
     Dosage: UNK UNK, UNKNOWN FREQ.
     Route: 048
     Dates: start: 2017
  3. TADALAFIL [Concomitant]
     Active Substance: TADALAFIL
     Indication: PRODUCT USED FOR UNKNOWN INDICATION
     Dosage: UNK UNK, UNKNOWN FREQ.
     Route: 048
     Dates: start: 2017

REACTIONS (6)
  - Dyspnoea [Recovered/Resolved]
  - Nasal congestion [Unknown]
  - Dysphonia [Recovered/Resolved]
  - Constipation [Not Recovered/Not Resolved]
  - Dysuria [Not Recovered/Not Resolved]
  - Excoriation [Unknown]

NARRATIVE: CASE EVENT DATE: 2017
